FAERS Safety Report 24289279 (Version 1)
Quarter: 2024Q3

REPORT INFORMATION
  Report Type: Spontaneous
  Country: DE (occurrence: DE)
  Receive Date: 20240906
  Receipt Date: 20240906
  Transmission Date: 20241017
  Serious: Yes (Hospitalization)
  Sender: TEVA
  Company Number: DE-DCGMA-24203698

PATIENT
  Age: 12 Year
  Sex: Male
  Weight: 24 kg

DRUGS (3)
  1. LAMOTRIGINE [Suspect]
     Active Substance: LAMOTRIGINE
     Indication: Benign rolandic epilepsy
     Route: 048
     Dates: start: 20231129, end: 20231129
  2. LAMOTRIGINE [Suspect]
     Active Substance: LAMOTRIGINE
     Indication: Benign rolandic epilepsy
     Route: 048
     Dates: start: 20231114, end: 20231127
  3. LAMOTRIGINE [Suspect]
     Active Substance: LAMOTRIGINE
     Indication: Benign rolandic epilepsy
     Dosage: 12.5 MG 1-0-1
     Route: 048
     Dates: start: 20231128, end: 20231128

REACTIONS (1)
  - Rash [Recovered/Resolved]

NARRATIVE: CASE EVENT DATE: 20231129
